FAERS Safety Report 6607310-8 (Version None)
Quarter: 2010Q1

REPORT INFORMATION
  Report Type: 
  Country: None (occurrence: None)
  Receive Date: 20100228
  Receipt Date: 20100224
  Transmission Date: 20100710
  Serious: Yes (Hospitalization)
  Sender: FDA-Public Use
  Company Number: US-BRISTOL-MYERS SQUIBB COMPANY-14952329

PATIENT
  Age: 63 Year
  Sex: Male
  Weight: 82 kg

DRUGS (11)
  1. IXABEPILONE [Suspect]
     Indication: NEOPLASM
     Dosage: DOSE FREQUENCY: DAY 1,8+15. CYCLE 3 DAY 1 STARTED ON 19JAN2010.
     Dates: start: 20100119
  2. IXABEPILONE [Suspect]
     Indication: PANCREATIC CARCINOMA METASTATIC
     Dosage: DOSE FREQUENCY: DAY 1,8+15. CYCLE 3 DAY 1 STARTED ON 19JAN2010.
     Dates: start: 20100119
  3. SUNITINIB MALATE [Suspect]
     Indication: PANCREATIC CARCINOMA METASTATIC
     Dosage: DOSE FREQUENCY: STARTS ON DAY 8. CYCLE 3 DAY 1 STARTED ON 19JAN2010.
     Dates: start: 20100119
  4. PRILOSEC [Concomitant]
  5. CELEBREX [Concomitant]
  6. MULTIPLE VITAMINS [Concomitant]
  7. CADUET [Concomitant]
  8. VICODIN [Concomitant]
  9. OSTEO BI-FLEX [Concomitant]
  10. CREON [Concomitant]
  11. IBUPROFEN [Concomitant]

REACTIONS (2)
  - INTESTINAL PERFORATION [None]
  - NEUTROPENIA [None]
